FAERS Safety Report 5817618-1 (Version None)
Quarter: 2008Q3

REPORT INFORMATION
  Report Type: 
  Country: None (occurrence: None)
  Receive Date: 20080722
  Receipt Date: 20080721
  Transmission Date: 20090109
  Serious: Yes (Hospitalization)
  Sender: FDA-Public Use
  Company Number: FR-WYE-G01547008

PATIENT
  Sex: Male
  Weight: 9.1 kg

DRUGS (2)
  1. ADVIL [Suspect]
     Indication: PYREXIA
     Dosage: ONE DOSE PER KILOGRAM AS REQUIRED
     Route: 048
     Dates: start: 20080504, end: 20080509
  2. DOLIPRANE [Suspect]
     Indication: PYREXIA
     Dosage: UNKNOWN
     Route: 048
     Dates: start: 20080504

REACTIONS (4)
  - CONDITION AGGRAVATED [None]
  - NASOPHARYNGITIS [None]
  - PLEURAL EFFUSION [None]
  - PNEUMONIA [None]
